FAERS Safety Report 16995953 (Version 1)
Quarter: 2019Q4

REPORT INFORMATION
  Report Type: Spontaneous
  Country: CN (occurrence: CN)
  Receive Date: 20191105
  Receipt Date: 20191105
  Transmission Date: 20200122
  Serious: Yes (Other)
  Sender: FDA-Public Use
  Company Number: CN-FRESENIUS KABI-FK201912127

PATIENT
  Age: 49 Year
  Sex: Female
  Weight: 51 kg

DRUGS (4)
  1. CYSTEINE HYDROCHLORIDE/LEUCINE/METHIONINE/PHENYLALANINE/HISTIDINE/VALINE/THREONINE/TRYPTOPHAN, L-/IS [COMPOUND AMINO ACID (9AA)] [Suspect]
     Active Substance: AMINO ACIDS, SOURCE UNSPECIFIED
     Indication: NUTRITIONAL SUPPLEMENTATION
     Dosage: 1000ML, QD
     Route: 041
     Dates: start: 20191022, end: 20191023
  2. OMEGAVEN [Suspect]
     Active Substance: FISH OIL
     Indication: NUTRITIONAL SUPPLEMENTATION
     Dosage: 100 ML, QD
     Route: 041
     Dates: start: 20191022, end: 20191023
  3. SMOFLIPID [Suspect]
     Active Substance: FISH OIL\MEDIUM-CHAIN TRIGLYCERIDES\OLIVE OIL\SOYBEAN OIL
     Indication: NUTRITIONAL SUPPLEMENTATION
     Dosage: 250ML, QD
     Route: 041
     Dates: start: 20191022, end: 20191023
  4. DIPEPTIVEN [Suspect]
     Active Substance: ALANYL GLUTAMINE
     Indication: NUTRITIONAL SUPPLEMENTATION
     Dosage: 100 ML, QD
     Route: 041
     Dates: start: 20191022, end: 20191023

REACTIONS (7)
  - Confusional state [Recovering/Resolving]
  - Seizure [Recovered/Resolved]
  - Tachycardia [Recovering/Resolving]
  - Hyperhidrosis [Recovered/Resolved]
  - Nausea [Recovered/Resolved]
  - Pyrexia [Recovered/Resolved]
  - Vomiting [Recovered/Resolved]

NARRATIVE: CASE EVENT DATE: 20191022
